FAERS Safety Report 15899632 (Version 1)
Quarter: 2019Q1

REPORT INFORMATION
  Report Type: Spontaneous
  Country: US (occurrence: US)
  Receive Date: 20190131
  Receipt Date: 20190131
  Transmission Date: 20190417
  Serious: Yes (Other)
  Sender: FDA-Public Use
  Company Number: None

PATIENT
  Age: 74 Year
  Sex: Male

DRUGS (1)
  1. AMLODIPINE [Suspect]
     Active Substance: AMLODIPINE BESYLATE
     Indication: HYPERTENSION
     Route: 048
     Dates: start: 20190111, end: 20190131

REACTIONS (3)
  - Chest pain [None]
  - Pulmonary arterial pressure abnormal [None]
  - Pain in extremity [None]

NARRATIVE: CASE EVENT DATE: 20190131
